FAERS Safety Report 14104009 (Version 3)
Quarter: 2018Q2

REPORT INFORMATION
  Report Type: Spontaneous
  Country: US (occurrence: US)
  Receive Date: 20171018
  Receipt Date: 20180407
  Transmission Date: 20180711
  Serious: Yes (Other)
  Sender: FDA-Public Use
  Company Number: US-AMGEN-USASP2017098628

PATIENT
  Sex: Female

DRUGS (1)
  1. PROLIA [Suspect]
     Active Substance: DENOSUMAB
     Indication: OSTEOPOROSIS POSTMENOPAUSAL
     Dosage: UNK
     Route: 065

REACTIONS (9)
  - Spinal compression fracture [Unknown]
  - Pain [Unknown]
  - Paranasal sinus hypersecretion [Not Recovered/Not Resolved]
  - Osteoarthritis [Unknown]
  - Unevaluable event [Unknown]
  - Fall [Unknown]
  - Hypertension [Unknown]
  - Hip fracture [Unknown]
  - Joint dislocation postoperative [Unknown]

NARRATIVE: CASE EVENT DATE: 201609
